FAERS Safety Report 25266523 (Version 1)
Quarter: 2025Q2

REPORT INFORMATION
  Report Type: Spontaneous
  Country: LV (occurrence: LV)
  Receive Date: 20250505
  Receipt Date: 20250505
  Transmission Date: 20250716
  Serious: Yes (Death, Other)
  Sender: VIIV
  Company Number: LV-VIIV HEALTHCARE-LV2025EME052852

PATIENT

DRUGS (1)
  1. DOVATO [Suspect]
     Active Substance: DOLUTEGRAVIR SODIUM\LAMIVUDINE
     Indication: Product used for unknown indication

REACTIONS (1)
  - Completed suicide [Fatal]
